FAERS Safety Report 22151201 (Version 1)
Quarter: 2023Q1

REPORT INFORMATION
  Report Type: Spontaneous
  Country: US (occurrence: None)
  Receive Date: 20230328
  Receipt Date: 20230328
  Transmission Date: 20230418
  Serious: Yes (Other)
  Sender: FDA-Public Use
  Company Number: None

PATIENT
  Age: 49 Year
  Sex: Female
  Weight: 76.5 kg

DRUGS (13)
  1. WEGOVY [Suspect]
     Active Substance: SEMAGLUTIDE
     Indication: Weight decreased
     Dosage: OTHER QUANTITY : 1 INJECTION(S);?OTHER FREQUENCY : ONCE/WEEK;?
     Route: 058
  2. ZYRTEC [Concomitant]
     Active Substance: CETIRIZINE HYDROCHLORIDE
  3. IRON [Concomitant]
     Active Substance: IRON
  4. VITAMIN B12 [Concomitant]
     Active Substance: CYANOCOBALAMIN
  5. MAGNESIUM [Concomitant]
     Active Substance: MAGNESIUM
  6. POTASSIUM [Concomitant]
     Active Substance: POTASSIUM
  7. BIOTIN [Concomitant]
     Active Substance: BIOTIN
  8. VITAMIN D [Concomitant]
     Active Substance: VITAMIN D NOS
  9. CALCIUM [Concomitant]
     Active Substance: CALCIUM
  10. ADVIL [Concomitant]
     Active Substance: IBUPROFEN
  11. SIMPESSE [Concomitant]
     Active Substance: ETHINYL ESTRADIOL\LEVONORGESTREL
  12. LISINOPRIL [Concomitant]
     Active Substance: LISINOPRIL
  13. WEGOVY [Concomitant]
     Active Substance: SEMAGLUTIDE

REACTIONS (2)
  - Pruritus [None]
  - Post procedural complication [None]

NARRATIVE: CASE EVENT DATE: 20230102
